FAERS Safety Report 9738834 (Version 1)
Quarter: 2013Q4

REPORT INFORMATION
  Report Type: Spontaneous
  Country: US (occurrence: US)
  Receive Date: 20131209
  Receipt Date: 20131209
  Transmission Date: 20140711
  Serious: No
  Sender: FDA-Public Use
  Company Number: US-PFIZER INC-2013348595

PATIENT
  Age: 5 Decade
  Sex: Female
  Weight: 83.9 kg

DRUGS (4)
  1. LYRICA [Suspect]
     Indication: FIBROMYALGIA
     Dosage: 50 MG, 3X/DAY
     Route: 048
     Dates: start: 20131203
  2. CYMBALTA [Concomitant]
     Dosage: UNK
  3. XANAX [Concomitant]
     Indication: BIPOLAR DISORDER
     Dosage: UNK
  4. XANAX [Concomitant]
     Indication: DEPRESSION

REACTIONS (3)
  - Intentional drug misuse [Unknown]
  - Alcohol abuse [Unknown]
  - Abnormal behaviour [Unknown]
